FAERS Safety Report 20013311 (Version 15)
Quarter: 2022Q4

REPORT INFORMATION
  Report Type: Report from Study
  Country: CN (occurrence: CN)
  Receive Date: 20211029
  Receipt Date: 20221221
  Transmission Date: 20230112
  Serious: Yes (Hospitalization)
  Sender: FDA-Public Use
  Company Number: CN-TAKEDA-2021TUS066673

PATIENT
  Age: 60 Year
  Sex: Male
  Weight: 70 kg

DRUGS (21)
  1. IXAZOMIB [Suspect]
     Active Substance: IXAZOMIB
     Indication: Plasma cell myeloma
     Dosage: 4 MILLIGRAM, 1/WEEK
     Route: 048
     Dates: start: 20210907
  2. GLUTATHIONE REDUCED [Concomitant]
     Indication: Prophylaxis
     Dosage: 1.8 GRAM, QD
     Route: 042
     Dates: start: 20210915, end: 20210924
  3. METHYLCOBALAMIN [Concomitant]
     Active Substance: METHYLCOBALAMIN
     Indication: Neuropathy peripheral
     Dosage: 500 MICROGRAM, QOD
     Route: 042
     Dates: start: 20210915, end: 20210928
  4. CEFOPERAZONE SODIUM\SULBACTAM SODIUM [Concomitant]
     Active Substance: CEFOPERAZONE SODIUM\SULBACTAM SODIUM
     Indication: Infection
     Dosage: 4.5 GRAM
     Route: 042
     Dates: start: 20210915, end: 20210928
  5. OMEPRAZOLE [Concomitant]
     Active Substance: OMEPRAZOLE
     Indication: Prophylaxis
     Dosage: 40 MILLIGRAM, QD
     Route: 042
     Dates: start: 20210915, end: 20210928
  6. OMEPRAZOLE [Concomitant]
     Active Substance: OMEPRAZOLE
     Dosage: 40 MILLIGRAM, QD
     Route: 042
     Dates: start: 20211004, end: 20211006
  7. DEXAMETHASONE [Concomitant]
     Active Substance: DEXAMETHASONE
     Indication: Allergy prophylaxis
     Dosage: 20 MILLIGRAM
     Route: 042
     Dates: start: 20210915, end: 20210918
  8. ASPIRIN [Concomitant]
     Active Substance: ASPIRIN
     Indication: Coagulopathy
     Dosage: 100 MILLIGRAM
     Route: 048
     Dates: start: 20210915, end: 20210918
  9. POMALIDOMIDE [Concomitant]
     Active Substance: POMALIDOMIDE
     Indication: Neoplasm malignant
     Dosage: 4 MILLIGRAM, QD
     Route: 048
  10. GLYCYRRHIZIN [Concomitant]
     Active Substance: GLYCYRRHIZIN
     Indication: Prophylaxis
     Dosage: 160 MILLIGRAM, QD
     Route: 042
     Dates: start: 20210915, end: 20210928
  11. DOXOFYLLINE [Concomitant]
     Active Substance: DOXOFYLLINE
     Indication: Pneumonia
     Dosage: 0.3 GRAM, QD
     Route: 042
     Dates: start: 20210915, end: 20210916
  12. CALCIUM GLUCONATE [Concomitant]
     Active Substance: CALCIUM GLUCONATE
     Indication: Allergy prophylaxis
     Dosage: 10 MILLILITER, QD
     Route: 042
     Dates: start: 20210915, end: 20210928
  13. VORICONAZOLE [Concomitant]
     Active Substance: VORICONAZOLE
     Indication: Antifungal treatment
     Dosage: 0.2 GRAM
     Route: 042
     Dates: start: 20210915, end: 20210924
  14. ISOSORBIDE [Concomitant]
     Active Substance: ISOSORBIDE
     Indication: Cardiac failure
     Dosage: 50 MILLIGRAM, TID
     Route: 048
     Dates: start: 20210915, end: 20210928
  15. BICYCLOL [Concomitant]
     Active Substance: BICYCLOL
     Indication: Alanine aminotransferase increased
     Dosage: 50 MILLIGRAM, TID
     Route: 048
     Dates: start: 20210916, end: 20210928
  16. BICYCLOL [Concomitant]
     Active Substance: BICYCLOL
     Indication: Aspartate aminotransferase increased
  17. LEVOFLOXACIN [Concomitant]
     Active Substance: LEVOFLOXACIN
     Indication: Gastroenteritis
     Dosage: 0.5 GRAM, QD
     Route: 048
     Dates: start: 20210917, end: 20210922
  18. Pentazocin [Concomitant]
     Indication: Humerus fracture
     Dosage: 90 MILLIGRAM, BID
     Route: 042
     Dates: start: 20210924, end: 20210926
  19. ENOXAPARIN SODIUM [Concomitant]
     Active Substance: ENOXAPARIN SODIUM
     Indication: Thrombosis prophylaxis
     Dosage: UNK UNK, QD
     Dates: start: 20210928, end: 20211006
  20. FLURBIPROFEN [Concomitant]
     Active Substance: FLURBIPROFEN
     Indication: Analgesic therapy
     Dosage: 100 MILLIGRAM, QD
     Route: 042
     Dates: start: 20210928, end: 20211006
  21. INDAPAMIDE [Concomitant]
     Active Substance: INDAPAMIDE
     Indication: Hypertension
     Dosage: 2.5 MILLIGRAM, QD
     Route: 048

REACTIONS (19)
  - Pathological fracture [Recovered/Resolved]
  - White blood cell count decreased [Not Recovered/Not Resolved]
  - Anaemia [Unknown]
  - Lymphocyte count decreased [Not Recovered/Not Resolved]
  - Hypocalcaemia [Recovering/Resolving]
  - Blood bilirubin increased [Recovering/Resolving]
  - Bilirubin conjugated increased [Recovering/Resolving]
  - Alanine aminotransferase increased [Recovering/Resolving]
  - Aspartate aminotransferase increased [Recovering/Resolving]
  - Gamma-glutamyltransferase increased [Recovering/Resolving]
  - Nausea [Recovering/Resolving]
  - Platelet count decreased [Recovering/Resolving]
  - Soft tissue swelling [Recovering/Resolving]
  - Gastroenteritis [Recovering/Resolving]
  - Blood uric acid decreased [Recovering/Resolving]
  - Blood albumin decreased [Recovering/Resolving]
  - Decreased appetite [Recovering/Resolving]
  - Poor quality sleep [Recovering/Resolving]
  - Off label use [Unknown]

NARRATIVE: CASE EVENT DATE: 20210907
